FAERS Safety Report 8875318 (Version 1)
Quarter: 2012Q4

REPORT INFORMATION
  Report Type: 
  Country: JP (occurrence: JP)
  Receive Date: 20121029
  Receipt Date: 20121029
  Transmission Date: 20130627
  Serious: Yes (Hospitalization, Other)
  Sender: FDA-Public Use
  Company Number: JP-ACTELION-A-JP2006-11908

PATIENT
  Age: 23 Year
  Sex: Male
  Weight: 58.1 kg

DRUGS (16)
  1. TRACLEER [Suspect]
     Indication: PULMONARY ARTERIAL HYPERTENSION
     Dosage: 125 mg, bid
     Route: 048
     Dates: start: 20051107, end: 20060309
  2. TRACLEER [Suspect]
     Dosage: 62.5 mg, single
     Route: 048
     Dates: start: 20051017, end: 20051017
  3. TRACLEER [Suspect]
     Dosage: 93.75 mg, bid
     Route: 048
     Dates: start: 20051027, end: 20051106
  4. TRACLEER [Suspect]
     Dosage: 62.5 mg, bid
     Route: 048
     Dates: start: 20060310, end: 20060324
  5. TRACLEER [Suspect]
     Dosage: 62.5 mg, bid
     Route: 048
     Dates: start: 20051020, end: 20051026
  6. ISONIAZID [Suspect]
     Indication: EXPOSURE TO COMMUNICABLE DISEASE
     Dates: start: 20051228, end: 20060315
  7. BERAPROST SODIUM [Suspect]
  8. OXYGEN [Concomitant]
  9. PYRIDOXAL PHOSPHATE [Concomitant]
  10. WARFARIN POTASSIUM [Concomitant]
  11. OSELTAMIVIR [Concomitant]
  12. ACETAMINOPHEN [Concomitant]
  13. RABEPRAZOLE SODIUM [Concomitant]
  14. BUNAZOSIN HYDROCHLORIDE [Concomitant]
  15. SULTAMICILLIN [Concomitant]
  16. CEFOTIAM [Concomitant]

REACTIONS (10)
  - Liver function test abnormal [Recovered/Resolved]
  - Aspartate aminotransferase increased [Recovered/Resolved]
  - Alanine aminotransferase increased [Recovered/Resolved]
  - Blood alkaline phosphatase increased [Recovered/Resolved]
  - Gamma-glutamyltransferase increased [Recovered/Resolved]
  - Hot flush [Recovering/Resolving]
  - Headache [Recovering/Resolving]
  - Influenza [Recovered/Resolved]
  - Pyrexia [Recovered/Resolved]
  - Haemoptysis [Recovered/Resolved]
